FAERS Safety Report 4634759-5 (Version None)
Quarter: 2005Q2

REPORT INFORMATION
  Report Type: 
  Country: None (occurrence: None)
  Receive Date: 20050412
  Receipt Date: 20050325
  Transmission Date: 20051028
  Serious: Yes (Other)
  Sender: FDA-Public Use
  Company Number: DSA_60477_2005

PATIENT
  Age: 69 Year
  Sex: Female
  Weight: 46.9019 kg

DRUGS (5)
  1. MYSOLINE [Suspect]
     Indication: EPILEPSY
     Dosage: 250 MG BID PO
     Route: 048
  2. COMMIT [Suspect]
     Indication: SMOKING CESSATION THERAPY
     Dosage: DF QDAY PO
     Route: 048
     Dates: start: 20050101, end: 20050301
  3. LAMICTAL [Concomitant]
  4. SYNTHROID [Concomitant]
  5. FOSAMAX [Concomitant]

REACTIONS (2)
  - CONVULSION [None]
  - HEADACHE [None]
